FAERS Safety Report 6895145-0 (Version None)
Quarter: 2010Q3

REPORT INFORMATION
  Report Type: 
  Country: None (occurrence: None)
  Receive Date: 20100802
  Receipt Date: 20100723
  Transmission Date: 20110219
  Serious: Yes (Other)
  Sender: FDA-Public Use
  Company Number: GB-ASTRAZENECA-2010SE29101

PATIENT
  Age: 30 Year
  Sex: Female
  Weight: 49 kg

DRUGS (6)
  1. ZOLADEX [Suspect]
     Indication: ENDOMETRIOSIS
     Route: 058
     Dates: start: 20100609
  2. ADCAL D3 [Concomitant]
     Indication: OSTEOPENIA
     Dosage: ONE BD
     Route: 048
     Dates: start: 20100617
  3. CERAZETTE [Concomitant]
     Dosage: 2 BD
     Route: 048
     Dates: start: 20100117
  4. METHADONE HCL [Concomitant]
     Indication: PAIN
     Dosage: 2 TDS
     Route: 048
     Dates: start: 20100614
  5. PAROXETINE HCL [Concomitant]
     Indication: OBSESSIVE-COMPULSIVE DISORDER
     Dosage: ONE OD
     Route: 048
     Dates: start: 20100609
  6. ZOPICLONE [Concomitant]
     Indication: INSOMNIA
     Dosage: ONE
     Route: 048
     Dates: start: 20100526

REACTIONS (2)
  - ADMINISTRATION SITE PAIN [None]
  - SYRINGE ISSUE [None]
